FAERS Safety Report 11185111 (Version 1)
Quarter: 2015Q2

REPORT INFORMATION
  Report Type: Spontaneous
  Country: US (occurrence: US)
  Receive Date: 20150612
  Receipt Date: 20150612
  Transmission Date: 20150821
  Serious: Yes (Hospitalization, Other)
  Sender: FDA-Public Use
  Company Number: US-PFIZER INC-2015193745

PATIENT
  Age: 63 Year
  Sex: Female
  Weight: 97.96 kg

DRUGS (8)
  1. PROTONIX [Concomitant]
     Active Substance: PANTOPRAZOLE SODIUM
     Dosage: 40 MG, 1X/DAY
  2. XOPENEX [Concomitant]
     Active Substance: LEVALBUTEROL HYDROCHLORIDE
     Dosage: 90 ?G, AS NEEDED (TWO PUFFS )
  3. ELIQUIS [Concomitant]
     Active Substance: APIXABAN
     Dosage: 5 MG, 2X/DAY
  4. ASMANEX [Concomitant]
     Active Substance: MOMETASONE FUROATE
     Dosage: 220 ?G, (ONE PUFF ) 2X/DAY
  5. KLONOPIN [Concomitant]
     Active Substance: CLONAZEPAM
     Dosage: 1 MG, DAILY (AT BED TIME )
  6. TIKOSYN [Suspect]
     Active Substance: DOFETILIDE
     Indication: ATRIAL FIBRILLATION
     Dosage: 500 MG, 2X/DAY ( EVERY 12 HOURS)
     Route: 048
     Dates: start: 201402
  7. GLUCOSAMINE CHONDROITIN [Concomitant]
     Active Substance: CHONDROITIN SULFATE (BOVINE)\GLUCOSAMINE HYDROCHLORIDE
     Indication: ARTHRITIS
     Dosage: 1 DF, 2X/DAY
  8. FISH OIL OMEGA 3 [Concomitant]
     Dosage: (FISH OIL 1200 MG + 350 OF OMEGA 3), 1X/DAY

REACTIONS (6)
  - Dizziness [Not Recovered/Not Resolved]
  - Cardiac disorder [Unknown]
  - Gait disturbance [Unknown]
  - Dyspnoea [Not Recovered/Not Resolved]
  - Asphyxia [Not Recovered/Not Resolved]
  - Chest discomfort [Unknown]

NARRATIVE: CASE EVENT DATE: 201407
